FAERS Safety Report 8486357-3 (Version None)
Quarter: 2012Q3

REPORT INFORMATION
  Report Type: 
  Country: None (occurrence: None)
  Receive Date: 20120703
  Receipt Date: 20120216
  Transmission Date: 20120928
  Serious: Yes (Life-Threatening, Hospitalization)
  Sender: FDA-Public Use
  Company Number: JP-GLAXOSMITHKLINE-B0782480A

PATIENT
  Sex: Female

DRUGS (7)
  1. LAMICTAL [Suspect]
     Indication: BIPOLAR I DISORDER
     Dosage: 25MG PER DAY
     Route: 048
     Dates: start: 20111209
  2. LENDEM [Concomitant]
     Route: 048
  3. LITHIUM CARBONATE [Concomitant]
     Route: 048
  4. SEROQUEL [Concomitant]
  5. MEDIPEACE [Concomitant]
     Route: 048
  6. SELBEX [Concomitant]
     Route: 048
  7. PURSENNID [Concomitant]
     Route: 048

REACTIONS (16)
  - HEADACHE [None]
  - HYPOTENSION [None]
  - TACHYCARDIA [None]
  - TOXIC EPIDERMAL NECROLYSIS [None]
  - ASTHENIA [None]
  - ATAXIA [None]
  - NERVOUS SYSTEM DISORDER [None]
  - HYPERTHERMIA [None]
  - RASH [None]
  - DIZZINESS [None]
  - DYSLALIA [None]
  - URINARY INCONTINENCE [None]
  - STEVENS-JOHNSON SYNDROME [None]
  - DECREASED APPETITE [None]
  - LYMPHOCYTE STIMULATION TEST POSITIVE [None]
  - TREMOR [None]
